FAERS Safety Report 5512265-3 (Version None)
Quarter: 2007Q4

REPORT INFORMATION
  Report Type: 
  Country: None (occurrence: None)
  Receive Date: 20071112
  Receipt Date: 20070829
  Transmission Date: 20080405
  Serious: No
  Sender: FDA-Public Use
  Company Number: A0677357A

PATIENT
  Age: 16 Year
  Sex: Female

DRUGS (1)
  1. VERAMYST [Suspect]
     Dosage: 1SPR PER DAY
     Route: 045
     Dates: start: 20070817

REACTIONS (2)
  - NASAL DISCOMFORT [None]
  - NASAL DRYNESS [None]
